FAERS Safety Report 8047013-9 (Version None)
Quarter: 2012Q1

REPORT INFORMATION
  Report Type: 
  Country: None (occurrence: None)
  Receive Date: 20120116
  Receipt Date: 20120109
  Transmission Date: 20120608
  Serious: Yes (Other)
  Sender: FDA-Public Use
  Company Number: GB-TEVA-316823ISR

PATIENT
  Age: 30 Year
  Sex: Female
  Weight: 56.5 kg

DRUGS (2)
  1. TRIMETHOPRIM [Suspect]
     Dates: start: 20111222, end: 20111229
  2. COMBINED ORAL CONTRACEPTIVE [Concomitant]

REACTIONS (4)
  - PARAESTHESIA [None]
  - RASH [None]
  - BURNING SENSATION [None]
  - LIP SWELLING [None]
